FAERS Safety Report 10219952 (Version 1)
Quarter: 2014Q2

REPORT INFORMATION
  Report Type: Spontaneous
  Country: US (occurrence: US)
  Receive Date: 20140605
  Receipt Date: 20140605
  Transmission Date: 20141212
  Serious: No
  Sender: FDA-Public Use
  Company Number: US-BAXTER-2014BAX027818

PATIENT
  Sex: Female

DRUGS (2)
  1. GAMMAGARD LIQUID [Suspect]
     Indication: NEUTROPENIA
     Route: 065
  2. GAMMAGARD LIQUID [Suspect]
     Indication: OFF LABEL USE

REACTIONS (2)
  - Pruritus generalised [Unknown]
  - Blister [Unknown]
